FAERS Safety Report 4299932-7 (Version None)
Quarter: 2004Q1

REPORT INFORMATION
  Report Type: 
  Country: None (occurrence: None)
  Receive Date: 20040218
  Receipt Date: 20040204
  Transmission Date: 20041129
  Serious: Yes (Death)
  Sender: FDA-Public Use
  Company Number: ES-JNJFOC-20040103787

PATIENT
  Sex: 0

DRUGS (1)
  1. INFLIXIMAB (INFLIXIMAB, RECOMBINANT) LYOPHILIZED POWDER [Suspect]
     Indication: SPONDYLOARTHROPATHY
     Dosage: INTRAVENOUS
     Route: 042

REACTIONS (1)
  - SEPSIS [None]
